FAERS Safety Report 25576639 (Version 1)
Quarter: 2025Q3

REPORT INFORMATION
  Report Type: Other
  Country: US (occurrence: US)
  Receive Date: 20250718
  Receipt Date: 20250718
  Transmission Date: 20251021
  Serious: Yes (Hospitalization, Other)
  Sender: NAVINTA LLC
  Company Number: US-Navinta LLC-000536

PATIENT
  Age: 67 Year
  Sex: Female

DRUGS (3)
  1. ROPIVACAINE [Suspect]
     Active Substance: ROPIVACAINE
     Indication: Nerve block
     Route: 053
  2. MIDAZOLAM [Concomitant]
     Active Substance: MIDAZOLAM
     Indication: Local anaesthesia
  3. FENTANYL [Concomitant]
     Active Substance: FENTANYL
     Indication: Local anaesthesia

REACTIONS (1)
  - Local anaesthetic systemic toxicity [Recovering/Resolving]
